FAERS Safety Report 7730064-9 (Version None)
Quarter: 2011Q3

REPORT INFORMATION
  Report Type: 
  Country: None (occurrence: None)
  Receive Date: 20110906
  Receipt Date: 20110826
  Transmission Date: 20111222
  Serious: Yes (Hospitalization, Other)
  Sender: FDA-Public Use
  Company Number: PHHY2011BR76697

PATIENT
  Sex: Female

DRUGS (1)
  1. TASIGNA [Suspect]
     Indication: CHRONIC MYELOID LEUKAEMIA
     Dosage: 200 MG, BID2SDO
     Dates: start: 20110721

REACTIONS (8)
  - PRURITUS GENERALISED [None]
  - ABDOMINAL PAIN UPPER [None]
  - MASS [None]
  - HEADACHE [None]
  - MENORRHAGIA [None]
  - NAUSEA [None]
  - MENSTRUAL DISORDER [None]
  - BACK PAIN [None]
